FAERS Safety Report 20782933 (Version 2)
Quarter: 2022Q2

REPORT INFORMATION
  Report Type: Spontaneous
  Country: MX (occurrence: None)
  Receive Date: 20220504
  Receipt Date: 20220513
  Transmission Date: 20220721
  Serious: Yes (Life-Threatening, Hospitalization, Disabling, Other)
  Sender: FDA-Public Use
  Company Number: MX-ROCHE-3089342

PATIENT
  Age: 56 Year
  Sex: Female

DRUGS (1)
  1. AVASTIN [Suspect]
     Active Substance: BEVACIZUMAB
     Indication: Macular oedema
     Dosage: FIRST DOSE: 8 MG
     Route: 050
     Dates: start: 202203

REACTIONS (8)
  - Suspected counterfeit product [Unknown]
  - Off label use [Unknown]
  - Off label use [Unknown]
  - Suspected transmission of an infectious agent via product [Unknown]
  - Bacterial endophthalmitis [Not Recovered/Not Resolved]
  - Pain [Unknown]
  - Nausea [Not Recovered/Not Resolved]
  - Vomiting [Not Recovered/Not Resolved]

NARRATIVE: CASE EVENT DATE: 20220301
